FAERS Safety Report 5143905-9 (Version None)
Quarter: 2006Q4

REPORT INFORMATION
  Report Type: 
  Country: None (occurrence: None)
  Receive Date: 20061106
  Receipt Date: 20060317
  Transmission Date: 20070319
  Serious: Yes (Hospitalization)
  Sender: FDA-Public Use
  Company Number: HQWYE479423MAR06

PATIENT
  Sex: Male
  Weight: 77.6 kg

DRUGS (9)
  1. ENBREL [Suspect]
     Indication: RHEUMATOID ARTHRITIS
     Route: 058
     Dates: start: 20050621, end: 20060111
  2. ENBREL [Suspect]
     Route: 058
     Dates: start: 20060517, end: 20060622
  3. PREDNISOLONE [Concomitant]
     Indication: RHEUMATOID ARTHRITIS
     Route: 048
     Dates: start: 20050719
  4. LOXONIN [Concomitant]
     Indication: RHEUMATOID ARTHRITIS
     Route: 048
     Dates: start: 20020427
  5. FAMOTIDINE [Concomitant]
     Route: 048
     Dates: start: 20040929
  6. ALFAROL [Concomitant]
     Route: 048
     Dates: start: 20030405
  7. FOLIAMIN [Concomitant]
     Route: 048
     Dates: start: 20041201
  8. RHEUMATREX [Concomitant]
     Indication: RHEUMATOID ARTHRITIS
     Route: 048
     Dates: start: 20041201
  9. PREDONINE [Concomitant]
     Indication: RHEUMATOID ARTHRITIS
     Route: 048
     Dates: start: 20050811

REACTIONS (2)
  - HYPERSENSITIVITY [None]
  - PLEURISY [None]
